FAERS Safety Report 14895821 (Version 2)
Quarter: 2018Q3

REPORT INFORMATION
  Report Type: Spontaneous
  Country: IT (occurrence: IT)
  Receive Date: 20180515
  Receipt Date: 20180901
  Transmission Date: 20181010
  Serious: Yes (Hospitalization)
  Sender: FDA-Public Use
  Company Number: IT-SUN PHARMACEUTICAL INDUSTRIES LTD-2018RR-172863

PATIENT
  Age: 18 Year
  Sex: Female

DRUGS (3)
  1. SERENASE 10 MG/ML GOCCE ORALI, SOLUZIONE [Suspect]
     Active Substance: HALOPERIDOL
     Indication: PSYCHOMOTOR HYPERACTIVITY
     Dosage: 100 MG, IN TOTAL
     Route: 048
     Dates: start: 20180417, end: 20180417
  2. CITALOPRAM [Suspect]
     Active Substance: CITALOPRAM HYDROBROMIDE
     Indication: DEPRESSION
     Dosage: ()
     Route: 065
     Dates: start: 20170417, end: 20170417
  3. LORAZEPAM. [Suspect]
     Active Substance: LORAZEPAM
     Indication: ANXIETY
     Dosage: 15 DF, IN TOTAL
     Route: 048
     Dates: start: 20180417, end: 20180417

REACTIONS (4)
  - Withdrawal syndrome [Recovered/Resolved]
  - Drug abuse [Recovered/Resolved]
  - Pain [Recovered/Resolved]
  - Sopor [Recovered/Resolved]

NARRATIVE: CASE EVENT DATE: 20180417
